FAERS Safety Report 6373364-X (Version None)
Quarter: 2009Q3

REPORT INFORMATION
  Report Type: 
  Country: None (occurrence: None)
  Receive Date: 20090924
  Receipt Date: 20090327
  Transmission Date: 20100115
  Serious: No
  Sender: FDA-Public Use
  Company Number: US-ASTRAZENECA-2009UW07967

PATIENT
  Age: 30896 Day
  Sex: Female

DRUGS (11)
  1. SEROQUEL [Suspect]
     Route: 048
     Dates: start: 20090227, end: 20090327
  2. AMBIEN [Concomitant]
  3. CARDIZEM [Concomitant]
  4. KEPPRA [Concomitant]
  5. KLONOPIN [Concomitant]
  6. PLAVIX [Concomitant]
  7. NEURONTIN [Concomitant]
  8. METOPROLOL TARTRATE [Concomitant]
  9. PEPCID [Concomitant]
  10. RAMIPRIL [Concomitant]
  11. PAIN PATCH [Concomitant]

REACTIONS (3)
  - FORMICATION [None]
  - HALLUCINATION, VISUAL [None]
  - SOMNOLENCE [None]
